FAERS Safety Report 4796764-8 (Version None)
Quarter: 2005Q4

REPORT INFORMATION
  Report Type: 
  Country: None (occurrence: None)
  Receive Date: 20051007
  Receipt Date: 20050927
  Transmission Date: 20060501
  Serious: Yes (Hospitalization)
  Sender: FDA-Public Use
  Company Number: 2005134999

PATIENT
  Age: 50 Year
  Sex: Female
  Weight: 31.7518 kg

DRUGS (2)
  1. NEURONTIN [Suspect]
     Indication: EPILEPSY
     Dosage: UNKNOWN, ORAL
     Route: 048
     Dates: start: 20050828, end: 20050908
  2. PHENYTOIN SODIUM [Suspect]
     Indication: EPILEPSY
     Dosage: UNKNOWN, ORAL
     Route: 048
     Dates: start: 20050828, end: 20050908

REACTIONS (6)
  - CHOLESTASIS [None]
  - CYTOLYTIC HEPATITIS [None]
  - HEPATIC FUNCTION ABNORMAL [None]
  - HYPERSENSITIVITY [None]
  - PYREXIA [None]
  - THROMBOCYTOPENIA [None]
